FAERS Safety Report 12534739 (Version 1)
Quarter: 2016Q3

REPORT INFORMATION
  Report Type: Spontaneous
  Country: US (occurrence: US)
  Receive Date: 20160706
  Receipt Date: 20160706
  Transmission Date: 20161109
  Serious: Yes (Other)
  Sender: FDA-Public Use
  Company Number: US-BEH-2016070769

PATIENT
  Sex: Female

DRUGS (1)
  1. HIZENTRA [Suspect]
     Active Substance: HUMAN IMMUNOGLOBULIN G
     Indication: PRODUCT USED FOR UNKNOWN INDICATION
     Route: 065

REACTIONS (7)
  - Increased bronchial secretion [Unknown]
  - Sinusitis [Unknown]
  - Arthropathy [Unknown]
  - Sinus operation [Unknown]
  - Cataract [Unknown]
  - Chronic obstructive pulmonary disease [Unknown]
  - Fungal infection [Unknown]

NARRATIVE: CASE EVENT DATE: 201602
